FAERS Safety Report 16302975 (Version 1)
Quarter: 2019Q2

REPORT INFORMATION
  Report Type: Spontaneous
  Country: US (occurrence: US)
  Receive Date: 20190513
  Receipt Date: 20190513
  Transmission Date: 20190711
  Serious: Yes (Other)
  Sender: FDA-Public Use
  Company Number: US-009507513-1905USA002232

PATIENT
  Age: 25 Year
  Sex: Female
  Weight: 113.38 kg

DRUGS (1)
  1. NEXPLANON [Suspect]
     Active Substance: ETONOGESTREL
     Indication: CONTRACEPTION
     Dosage: ABOUT 4 AND HALF YEARS AGO
     Route: 059
     Dates: start: 201410

REACTIONS (4)
  - Unintended pregnancy [Not Recovered/Not Resolved]
  - Sexually transmitted disease [Unknown]
  - Pregnancy with implant contraceptive [Not Recovered/Not Resolved]
  - Incorrect product administration duration [Unknown]

NARRATIVE: CASE EVENT DATE: 201710
